FAERS Safety Report 7358546-2 (Version None)
Quarter: 2011Q1

REPORT INFORMATION
  Report Type: 
  Country: None (occurrence: None)
  Receive Date: 20110317
  Receipt Date: 20110307
  Transmission Date: 20110831
  Serious: Yes (Hospitalization)
  Sender: FDA-Public Use
  Company Number: JP-NOVOPROD-323017

PATIENT
  Age: 68 Year
  Sex: Female

DRUGS (5)
  1. CORTRIL                            /00028601/ [Concomitant]
     Indication: ADRENAL INSUFFICIENCY
     Dosage: 10 MG, QD
     Route: 048
     Dates: start: 20110302
  2. PARIET [Concomitant]
     Indication: DUODENAL ULCER
     Dosage: 10 MG, QD
     Dates: start: 20110124
  3. VICTOZA [Suspect]
     Indication: TYPE 2 DIABETES MELLITUS
     Dosage: 0.3 MG, QD ( IN THE MORNING)
     Route: 058
     Dates: start: 20110114, end: 20110206
  4. ALLELOCK [Concomitant]
     Indication: TYPE 2 DIABETES MELLITUS
     Dosage: 1 MG, QD
     Route: 048
  5. DERMOVATE [Concomitant]
     Indication: DERMATITIS EXFOLIATIVE
     Dosage: UNK
     Route: 062
     Dates: start: 20101225, end: 20110213

REACTIONS (2)
  - HYPOGLYCAEMIA [None]
  - DECREASED APPETITE [None]
